FAERS Safety Report 9101726 (Version 1)
Quarter: 2013Q1

REPORT INFORMATION
  Report Type: Spontaneous
  Country: US (occurrence: US)
  Receive Date: 20130218
  Receipt Date: 20130218
  Transmission Date: 20140127
  Serious: Yes (Death, Other)
  Sender: FDA-Public Use
  Company Number: US-COVIDIEN/TYCO HEALTHCARE/MALLINCKRODT-T201300765

PATIENT
  Age: 19 Month
  Sex: Male

DRUGS (1)
  1. MORPHINE [Suspect]
     Dosage: UNK
     Route: 048

REACTIONS (3)
  - Overdose [Fatal]
  - Unresponsive to stimuli [Fatal]
  - Drug diversion [Fatal]
